FAERS Safety Report 16309463 (Version 1)
Quarter: 2019Q2

REPORT INFORMATION
  Report Type: Spontaneous
  Country: US (occurrence: US)
  Receive Date: 20190514
  Receipt Date: 20190514
  Transmission Date: 20190711
  Serious: Yes (Other)
  Sender: FDA-Public Use
  Company Number: US-BAYER-2019-094657

PATIENT
  Sex: Male

DRUGS (2)
  1. ACETYLSALICYLIC ACID (CARDIO) [Suspect]
     Active Substance: ASPIRIN
     Dosage: UNK
  2. XARELTO [Interacting]
     Active Substance: RIVAROXABAN

REACTIONS (2)
  - Haematoma [Recovering/Resolving]
  - Labelled drug-drug interaction medication error [None]
